FAERS Safety Report 24887164 (Version 2)
Quarter: 2025Q1

REPORT INFORMATION
  Report Type: Spontaneous
  Country: JP (occurrence: JP)
  Receive Date: 20250127
  Receipt Date: 20250326
  Transmission Date: 20250409
  Serious: Yes (Life-Threatening, Hospitalization, Disabling, Other)
  Sender: TAKEDA
  Company Number: JP-TAKEDA-2025TJP000940

PATIENT
  Age: 91 Year
  Sex: Male

DRUGS (2)
  1. NINLARO [Suspect]
     Active Substance: IXAZOMIB CITRATE
     Indication: Plasma cell myeloma
     Dosage: 2.3 MILLIGRAM, 1/WEEK
     Dates: start: 20230804
  2. NINLARO [Suspect]
     Active Substance: IXAZOMIB CITRATE

REACTIONS (4)
  - Cerebral haemorrhage [Recovering/Resolving]
  - Dysphagia [Unknown]
  - Wrong technique in product usage process [Recovering/Resolving]
  - Incorrect route of product administration [Recovering/Resolving]

NARRATIVE: CASE EVENT DATE: 20250116
